FAERS Safety Report 6809262-4 (Version None)
Quarter: 2010Q2

REPORT INFORMATION
  Report Type: 
  Country: None (occurrence: None)
  Receive Date: 20100630
  Receipt Date: 20100618
  Transmission Date: 20101027
  Serious: Yes (Hospitalization, Other)
  Sender: FDA-Public Use
  Company Number: US-CELGENEUS-163-21880-10012214

PATIENT
  Sex: Male

DRUGS (13)
  1. REVLIMID [Suspect]
     Route: 048
     Dates: start: 20080507
  2. HYDROCHLOROTHIAZIDE [Suspect]
     Indication: BLOOD PRESSURE
     Route: 065
  3. NEURONTIN [Concomitant]
     Route: 065
  4. NEURONTIN [Concomitant]
     Route: 065
  5. VELCADE [Concomitant]
     Indication: DRUG USE FOR UNKNOWN INDICATION
     Route: 065
  6. DEXAMETHASONE [Concomitant]
     Indication: DRUG USE FOR UNKNOWN INDICATION
     Route: 048
  7. ASPIRIN [Concomitant]
     Indication: PROPHYLAXIS
     Route: 065
  8. VALTREX [Concomitant]
     Indication: PROPHYLAXIS
     Route: 065
  9. ARIXTRA [Concomitant]
  10. NORVASC [Concomitant]
     Indication: DRUG USE FOR UNKNOWN INDICATION
     Route: 065
  11. FLOMAX [Concomitant]
     Indication: DRUG USE FOR UNKNOWN INDICATION
     Route: 065
  12. DURAGESIC-100 [Concomitant]
     Indication: DRUG USE FOR UNKNOWN INDICATION
     Route: 062
  13. PERCOCET [Concomitant]
     Indication: DRUG USE FOR UNKNOWN INDICATION
     Route: 065

REACTIONS (5)
  - ABSCESS LIMB [None]
  - BLOOD POTASSIUM DECREASED [None]
  - INTRASPINAL ABSCESS [None]
  - SEPSIS [None]
  - SKIN ULCER [None]
